FAERS Safety Report 7865518-8 (Version None)
Quarter: 2011Q4

REPORT INFORMATION
  Report Type: 
  Country: None (occurrence: None)
  Receive Date: 20111028
  Receipt Date: 20110112
  Transmission Date: 20120403
  Serious: No
  Sender: FDA-Public Use
  Company Number: US-GLAXOSMITHKLINE-A0905435A

PATIENT
  Age: 81 Year
  Sex: Female

DRUGS (13)
  1. SIMVASTATIN [Concomitant]
  2. ASCORBIC ACID [Concomitant]
  3. OXYGEN [Concomitant]
  4. CALCIUM CARBONATE [Concomitant]
  5. ADVAIR DISKUS 100/50 [Suspect]
     Indication: CHRONIC OBSTRUCTIVE PULMONARY DISEASE
     Dosage: 1PUFF TWICE PER DAY
     Route: 055
     Dates: start: 20060101
  6. ALENDRONATE SODIUM [Concomitant]
  7. AMLODIPINE [Concomitant]
  8. ALPRAZOLAM [Concomitant]
  9. ASPIRIN [Concomitant]
  10. METOPROLOL TARTRATE [Concomitant]
  11. LISINOPRIL [Concomitant]
  12. SENIOR MULTIVITAMIN [Concomitant]
  13. PROVENTIL [Concomitant]

REACTIONS (3)
  - DYSPHONIA [None]
  - INCREASED UPPER AIRWAY SECRETION [None]
  - COUGH [None]
